FAERS Safety Report 9160213 (Version 2)
Quarter: 2013Q1

REPORT INFORMATION
  Report Type: Report from Study
  Country: CA (occurrence: CA)
  Receive Date: 20130313
  Receipt Date: 20130325
  Transmission Date: 20140127
  Serious: Yes (Other)
  Sender: FDA-Public Use
  Company Number: CA-ROCHE-1200629

PATIENT
  Age: 70 Year
  Sex: Female
  Weight: 65 kg

DRUGS (9)
  1. ACTEMRA [Suspect]
     Indication: RHEUMATOID ARTHRITIS
     Route: 042
     Dates: start: 20110106
  2. ACTEMRA [Suspect]
     Route: 042
     Dates: start: 20110621
  3. ACTEMRA [Suspect]
     Route: 042
     Dates: start: 20120131
  4. CELEBREX [Concomitant]
  5. PREDNISONE [Concomitant]
  6. LOSEC (CANADA) [Concomitant]
  7. ADVIL [Concomitant]
  8. IRON SULPHATE [Concomitant]
  9. HERBAL SUPPLEMENTS [Concomitant]

REACTIONS (3)
  - Skin ulcer [Unknown]
  - Infected skin ulcer [Unknown]
  - Pain [Not Recovered/Not Resolved]
